FAERS Safety Report 9133796 (Version 1)
Quarter: 2013Q1

REPORT INFORMATION
  Report Type: Spontaneous
  Country: US (occurrence: US)
  Receive Date: 20130303
  Receipt Date: 20130303
  Transmission Date: 20140127
  Serious: Yes (Other)
  Sender: FDA-Public Use
  Company Number: US-ROXANE LABORATORIES, INC.-2013-RO-00299RO

PATIENT
  Age: 56 Year
  Sex: Female

DRUGS (4)
  1. ANASTROZOLE [Suspect]
     Indication: BREAST CANCER
     Dates: start: 20110820, end: 20111107
  2. LETROZOLE [Suspect]
     Indication: BREAST CANCER
     Dates: end: 20111115
  3. EXEMESTANE [Suspect]
     Indication: BREAST CANCER
     Dates: start: 20121206
  4. ZOLPIDEM [Suspect]
     Dosage: 10 MG

REACTIONS (4)
  - Suicidal ideation [Recovered/Resolved]
  - Mood altered [Recovered/Resolved]
  - Depression [Unknown]
  - Hot flush [Recovered/Resolved]
